FAERS Safety Report 9198703 (Version 1)
Quarter: 2013Q1

REPORT INFORMATION
  Report Type: Spontaneous
  Country: US (occurrence: None)
  Receive Date: 20130327
  Receipt Date: 20130327
  Transmission Date: 20140127
  Serious: Yes (Disabling)
  Sender: FDA-Public Use
  Company Number: None

PATIENT
  Age: 57 Year
  Sex: Female

DRUGS (3)
  1. LEXAPRO 20MG - GENERIC [Suspect]
     Indication: DEPRESSION
     Route: 048
  2. WELLBUTRIN XL (GENERIC) [Suspect]
     Route: 048
  3. ZOLOFT [Concomitant]

REACTIONS (1)
  - Depression [None]
